FAERS Safety Report 7483445-5 (Version None)
Quarter: 2011Q2

REPORT INFORMATION
  Report Type: 
  Country: None (occurrence: None)
  Receive Date: 20110517
  Receipt Date: 20110505
  Transmission Date: 20111010
  Serious: Yes (Other)
  Sender: FDA-Public Use
  Company Number: AT-JNJFOC-20110503198

PATIENT
  Age: 52 Year
  Sex: Female

DRUGS (3)
  1. ABACAVIR [Suspect]
     Indication: HIV INFECTION
     Route: 065
  2. RITONAVIR [Suspect]
     Indication: HIV INFECTION
     Route: 065
  3. DARUNAVIR ETHANOLATE [Suspect]
     Indication: HIV INFECTION
     Route: 048

REACTIONS (2)
  - DERMATITIS ACNEIFORM [None]
  - ALOPECIA [None]
